FAERS Safety Report 25698568 (Version 1)
Quarter: 2025Q3

REPORT INFORMATION
  Report Type: Other
  Country: GB (occurrence: GB)
  Receive Date: 20250819
  Receipt Date: 20250819
  Transmission Date: 20251021
  Serious: Yes (Other)
  Sender: Atnahs Healthcare
  Company Number: GB-MHRA-TPP24863390C19224400YC1754640119536

PATIENT

DRUGS (5)
  1. NAPROXEN [Suspect]
     Active Substance: NAPROXEN
     Indication: Product used for unknown indication
     Route: 065
     Dates: start: 20250801
  2. BENZALKONIUM CHLORIDE\DIMETHICONE\HYDROCORTISONE\NYSTATIN [Concomitant]
     Active Substance: BENZALKONIUM CHLORIDE\DIMETHICONE\HYDROCORTISONE\NYSTATIN
     Indication: Product used for unknown indication
     Route: 065
     Dates: start: 20250715, end: 20250729
  3. HuxD3 [Concomitant]
     Indication: Product used for unknown indication
     Route: 065
     Dates: start: 20250721
  4. DESOGESTREL [Concomitant]
     Active Substance: DESOGESTREL
     Indication: Ill-defined disorder
     Dosage: 1 DOSAGE FORM DAILY AT THE SAME TIME EACH DAY (CHECK...
     Route: 065
     Dates: start: 20250320
  5. TRANEXAMIC ACID [Concomitant]
     Active Substance: TRANEXAMIC ACID
     Indication: Ill-defined disorder
     Route: 065
     Dates: start: 20250320

REACTIONS (1)
  - Abdominal distension [Recovered/Resolved]
